FAERS Safety Report 5902388-9 (Version None)
Quarter: 2008Q3

REPORT INFORMATION
  Report Type: 
  Country: None (occurrence: None)
  Receive Date: 20080919
  Receipt Date: 20080714
  Transmission Date: 20090109
  Serious: No
  Sender: FDA-Public Use
  Company Number: US-WYE-H05102808

PATIENT
  Age: 70 Year
  Sex: Male
  Weight: 86.26 kg

DRUGS (7)
  1. PRISTIQ [Suspect]
     Indication: DEPRESSION
     Dosage: 50 MG 1X PER 1 DAY, ORAL
     Route: 048
     Dates: start: 20080501
  2. METOCARBAMOL (METHOCARBAMOL) [Concomitant]
  3. CELEXA [Concomitant]
  4. TRAMADOL HCL [Concomitant]
  5. SYNTHROID [Concomitant]
  6. NEURONTIN [Concomitant]
  7. MIDODRINE HYDROCHLORIDE [Concomitant]

REACTIONS (3)
  - BLOOD PRESSURE FLUCTUATION [None]
  - BLOOD PRESSURE INCREASED [None]
  - FATIGUE [None]
